FAERS Safety Report 6894058-8 (Version None)
Quarter: 2010Q3

REPORT INFORMATION
  Report Type: 
  Country: None (occurrence: None)
  Receive Date: 20100802
  Receipt Date: 20100721
  Transmission Date: 20110219
  Serious: Yes (Other)
  Sender: FDA-Public Use
  Company Number: US-JNJFOC-20100707594

PATIENT
  Age: 65 Year
  Sex: Female

DRUGS (2)
  1. ARESTIN [Suspect]
     Indication: GINGIVAL RECESSION
     Route: 004
  2. UNKNOWN MEDICATION [Concomitant]
     Indication: BLOOD PRESSURE

REACTIONS (3)
  - CONTUSION [None]
  - PLATELET COUNT DECREASED [None]
  - RASH GENERALISED [None]
